FAERS Safety Report 13044915 (Version 2)
Quarter: 2017Q3

REPORT INFORMATION
  Report Type: Spontaneous
  Country: US (occurrence: US)
  Receive Date: 20161220
  Receipt Date: 20170929
  Transmission Date: 20171127
  Serious: Yes (Hospitalization, Other)
  Sender: FDA-Public Use
  Company Number: US-SUN PHARMACEUTICAL INDUSTRIES LTD-2016US-124430

PATIENT
  Age: 91 Year
  Sex: Female

DRUGS (2)
  1. PLAQUENIL [Suspect]
     Active Substance: HYDROXYCHLOROQUINE SULFATE
     Indication: RHEUMATOID ARTHRITIS
     Dosage: UNK
     Route: 065
  2. QUININE [Suspect]
     Active Substance: QUININE
     Indication: MUSCLE SPASMS
     Dosage: UNK
     Route: 065

REACTIONS (2)
  - Toxicity to various agents [Recovered/Resolved]
  - Long QT syndrome [Recovered/Resolved]
